FAERS Safety Report 4268033-6 (Version None)
Quarter: 2004Q1

REPORT INFORMATION
  Report Type: 
  Country: None (occurrence: None)
  Receive Date: 20040109
  Receipt Date: 20031219
  Transmission Date: 20041129
  Serious: Yes (Death, Other)
  Sender: FDA-Public Use
  Company Number: FR-BRISTOL-MYERS SQUIBB COMPANY-12469383

PATIENT
  Age: 42 Year
  Sex: Male
  Weight: 62 kg

DRUGS (9)
  1. ATAZANAVIR [Suspect]
     Indication: HIV INFECTION
  2. SUSTIVA [Suspect]
     Indication: HIV INFECTION
  3. RITONAVIR [Suspect]
     Indication: HIV INFECTION
  4. PREVISCAN [Concomitant]
     Route: 048
     Dates: start: 19980101
  5. BACTRIM [Concomitant]
     Route: 048
     Dates: start: 19980101
  6. LASILIX [Concomitant]
     Route: 048
     Dates: start: 20010101
  7. HYPERIUM [Concomitant]
     Route: 048
     Dates: start: 19990101
  8. RIVOTRIL [Concomitant]
     Route: 048
     Dates: start: 20030301
  9. TEGRETOL [Concomitant]
     Dates: start: 20010101

REACTIONS (2)
  - MYOCARDIAL INFARCTION [None]
  - SUDDEN CARDIAC DEATH [None]
